FAERS Safety Report 5958873-7 (Version None)
Quarter: 2008Q4

REPORT INFORMATION
  Report Type: 
  Country: None (occurrence: None)
  Receive Date: 20081117
  Receipt Date: 20081106
  Transmission Date: 20090506
  Serious: Yes (Death, Life-Threatening, Hospitalization)
  Sender: FDA-Public Use
  Company Number: 004166

PATIENT
  Age: 16 Year
  Sex: Male

DRUGS (7)
  1. BUSULFEX [Suspect]
     Indication: STEM CELL TRANSPLANT
     Dosage: 36 ML, INTRAVENOUS
     Route: 042
     Dates: start: 20070412, end: 20070413
  2. TACROLIMUS [Suspect]
  3. VALPROATE SODIUM [Concomitant]
  4. FILGRASTIM (FILGRASTIM) [Concomitant]
  5. METHOTREXATE [Concomitant]
  6. CYCLOPHOSPHAMIDE [Concomitant]
  7. LASIX [Concomitant]

REACTIONS (19)
  - ACUTE GRAFT VERSUS HOST DISEASE [None]
  - ANOREXIA [None]
  - BONE MARROW TRANSPLANT [None]
  - BONE MARROW TRANSPLANT REJECTION [None]
  - CARDIAC FAILURE [None]
  - CHRONIC GRAFT VERSUS HOST DISEASE [None]
  - CYTOMEGALOVIRUS VIRAEMIA [None]
  - FUNGAL INFECTION [None]
  - HAEMOGLOBIN INCREASED [None]
  - HYPOKALAEMIA [None]
  - INFECTION [None]
  - MALAISE [None]
  - NAUSEA [None]
  - NEUTROPENIA [None]
  - PANCREATITIS [None]
  - PNEUMONIA STAPHYLOCOCCAL [None]
  - RENAL FAILURE ACUTE [None]
  - STAPHYLOCOCCAL SEPSIS [None]
  - VOMITING [None]
